FAERS Safety Report 9213930 (Version 1)
Quarter: 2013Q1

REPORT INFORMATION
  Report Type: Spontaneous
  Country: US (occurrence: None)
  Receive Date: 20120827
  Receipt Date: 20120827
  Transmission Date: 20140127
  Serious: No
  Sender: FDA-Public Use
  Company Number: 351859

PATIENT
  Age: 69 Year
  Sex: Male

DRUGS (3)
  1. VICTOZA (LIRAGLUTIDE) SOLUTION FOR INJECTION, 6MG/ML [Suspect]
     Indication: PRODUCT USED FOR UNKNOWN INDICATION
     Route: 058
  2. METFORMIN (METFORMIN) [Suspect]
  3. GLIPIZIDE [Suspect]

REACTIONS (2)
  - Stress [None]
  - Blood glucose increased [None]
